FAERS Safety Report 5152969-8 (Version None)
Quarter: 2006Q4

REPORT INFORMATION
  Report Type: 
  Country: None (occurrence: None)
  Receive Date: 20061117
  Receipt Date: 20060828
  Transmission Date: 20070319
  Serious: Yes (Death, Hospitalization)
  Sender: FDA-Public Use
  Company Number: US-ELI_LILLY_AND_COMPANY-US200608006459

PATIENT
  Age: 82 Year
  Sex: Female
  Weight: 91.609 kg

DRUGS (1)
  1. FORTEO [Suspect]
     Indication: OSTEOPOROSIS
     Dosage: 20 UG, DAILY (1/D)
     Dates: start: 20050801

REACTIONS (8)
  - ACUTE MYOCARDIAL INFARCTION [None]
  - ASTHENIA [None]
  - CARDIO-RESPIRATORY ARREST [None]
  - GENERAL PHYSICAL HEALTH DETERIORATION [None]
  - HYPOTENSION [None]
  - INTESTINAL ISCHAEMIA [None]
  - PULMONARY EMBOLISM [None]
  - SEPSIS [None]
